FAERS Safety Report 8758031 (Version 1)
Quarter: 2012Q4

REPORT INFORMATION
  Report Type: 
  Country: GB (occurrence: GB)
  Receive Date: 20120828
  Receipt Date: 20120828
  Transmission Date: 20130627
  Serious: Yes (Hospitalization, Other)
  Sender: FDA-Public Use
  Company Number: GB-ELI_LILLY_AND_COMPANY-GB201208006217

PATIENT

DRUGS (7)
  1. FLUOXETINE HYDROCHLORIDE [Suspect]
     Route: 064
  2. CHLORPROMAZINE [Concomitant]
     Dosage: UNK
     Route: 064
     Dates: start: 20110922
  3. CITALOPRAM [Concomitant]
     Dosage: UNK
     Route: 064
  4. DIHYDROCODEINE [Concomitant]
     Dosage: UNK
     Route: 064
  5. OMEPRAZOLE [Concomitant]
     Dosage: UNK
     Route: 064
  6. PROPRANOLOL [Concomitant]
     Dosage: UNK
     Route: 064
  7. SEROQUEL [Concomitant]
     Dosage: UNK
     Route: 064
     Dates: start: 20110323, end: 20110910

REACTIONS (6)
  - Neonatal respiratory distress syndrome [Unknown]
  - Hypocalcaemia [Unknown]
  - Pneumothorax [Unknown]
  - Drug withdrawal syndrome neonatal [Unknown]
  - Premature baby [Unknown]
  - Foetal exposure during pregnancy [Recovered/Resolved]
